APPROVED DRUG PRODUCT: AMIKACIN SULFATE
Active Ingredient: AMIKACIN SULFATE
Strength: EQ 50MG BASE/ML
Dosage Form/Route: INJECTABLE;INJECTION
Application: A063350 | Product #001
Applicant: HOSPIRA INC
Approved: Jul 30, 1993 | RLD: No | RS: No | Type: DISCN